FAERS Safety Report 12059416 (Version 1)
Quarter: 2016Q1

REPORT INFORMATION
  Report Type: Spontaneous
  Country: JP (occurrence: JP)
  Receive Date: 20160210
  Receipt Date: 20160210
  Transmission Date: 20160526
  Serious: Yes (Life-Threatening)
  Sender: FDA-Public Use
  Company Number: JP-WATSON-2016-02711

PATIENT
  Age: 30 Year
  Sex: Female

DRUGS (2)
  1. PROPRANOLOL [Suspect]
     Active Substance: PROPRANOLOL\PROPRANOLOL HYDROCHLORIDE
     Indication: PHAEOCHROMOCYTOMA CRISIS
     Dosage: UNK
     Route: 042
  2. PHENTOLAMINE [Suspect]
     Active Substance: PHENTOLAMINE
     Indication: PHAEOCHROMOCYTOMA CRISIS
     Dosage: UNK
     Route: 042

REACTIONS (1)
  - Ventricular fibrillation [Recovered/Resolved]
